FAERS Safety Report 17028901 (Version 1)
Quarter: 2019Q4

REPORT INFORMATION
  Report Type: Report from Study
  Country: None (occurrence: CA)
  Receive Date: 20191114
  Receipt Date: 20191114
  Transmission Date: 20200122
  Serious: Yes (Other)
  Sender: FDA-Public Use
  Company Number: CA-ABBVIE-19S-028-2721563-00

PATIENT
  Sex: Male

DRUGS (3)
  1. NEUPOGEN [Concomitant]
     Active Substance: FILGRASTIM
     Indication: PRODUCT USED FOR UNKNOWN INDICATION
     Dates: start: 201908
  2. LUPRON DEPOT [Suspect]
     Active Substance: LEUPROLIDE ACETATE
     Route: 030
  3. LUPRON DEPOT [Suspect]
     Active Substance: LEUPROLIDE ACETATE
     Indication: PROSTATE CANCER
     Route: 030
     Dates: start: 20181201

REACTIONS (9)
  - Hot flush [Recovering/Resolving]
  - Metastases to bone [Not Recovered/Not Resolved]
  - Nocturia [Unknown]
  - Pyrexia [Unknown]
  - White blood cell count decreased [Unknown]
  - Irritability [Not Recovered/Not Resolved]
  - Prostatic specific antigen increased [Unknown]
  - Red blood cell count decreased [Unknown]
  - Micturition urgency [Unknown]

NARRATIVE: CASE EVENT DATE: 2019
